FAERS Safety Report 4690476-7 (Version None)
Quarter: 2005Q2

REPORT INFORMATION
  Report Type: 
  Country: None (occurrence: None)
  Receive Date: 20050615
  Receipt Date: 20050606
  Transmission Date: 20051028
  Serious: Yes (Hospitalization)
  Sender: FDA-Public Use
  Company Number: PHRM2005FR01791

PATIENT
  Age: 79 Year
  Sex: Male

DRUGS (6)
  1. OROPIVALONE BACITRACINE [Concomitant]
     Indication: PHARYNGITIS
     Dosage: UNK, UNK
     Route: 048
     Dates: start: 20050303, end: 20050308
  2. OROPIVALONE BACITRACINE [Concomitant]
     Route: 048
     Dates: start: 20050310, end: 20050316
  3. TAREG [Suspect]
     Indication: HYPERTENSION
     Route: 048
     Dates: start: 20050303, end: 20050321
  4. AMODEX [Concomitant]
     Indication: PHARYNGITIS
     Route: 048
     Dates: start: 20050310, end: 20050316
  5. HEXASPRAY [Concomitant]
     Indication: PHARYNGITIS
     Route: 048
     Dates: start: 20030310, end: 20050316
  6. ZITHROMAX [Concomitant]
     Indication: PHARYNGITIS
     Route: 048
     Dates: start: 20050303, end: 20050305

REACTIONS (15)
  - ACUTE GENERALISED EXANTHEMATOUS PUSTULOSIS [None]
  - C-REACTIVE PROTEIN INCREASED [None]
  - EOSINOPHILIA [None]
  - ERYTHEMA [None]
  - FACE OEDEMA [None]
  - GAMMA-GLUTAMYLTRANSFERASE INCREASED [None]
  - HYPERSENSITIVITY [None]
  - INFLAMMATION [None]
  - LEUKOCYTOSIS [None]
  - PURPURA [None]
  - PYREXIA [None]
  - RASH MACULO-PAPULAR [None]
  - RASH PUSTULAR [None]
  - RED BLOOD CELL SEDIMENTATION RATE INCREASED [None]
  - TOXIC SKIN ERUPTION [None]
